FAERS Safety Report 5011198-9 (Version None)
Quarter: 2006Q2

REPORT INFORMATION
  Report Type: 
  Country: None (occurrence: None)
  Receive Date: 20060523
  Receipt Date: 20060509
  Transmission Date: 20061013
  Serious: Yes (Hospitalization)
  Sender: FDA-Public Use
  Company Number: WAES 0603GBR00145

PATIENT
  Age: 61 Year
  Sex: Female

DRUGS (4)
  1. COZAAR [Suspect]
     Indication: CARDIAC FAILURE CONGESTIVE
     Dosage: PO
     Route: 048
     Dates: start: 20030430
  2. ATORVASTATIN CALCIUM [Concomitant]
  3. BISOPROLOL [Concomitant]
  4. FUROSEMIDE [Concomitant]

REACTIONS (2)
  - BLOOD GLUCOSE INCREASED [None]
  - PERIARTHRITIS [None]
